FAERS Safety Report 10044319 (Version 1)
Quarter: 2014Q1

REPORT INFORMATION
  Report Type: Spontaneous
  Country: US (occurrence: US)
  Receive Date: 20140328
  Receipt Date: 20140328
  Transmission Date: 20141002
  Serious: Yes (Other)
  Sender: FDA-Public Use
  Company Number: US-PFIZER INC-2014086855

PATIENT
  Age: 62 Year
  Sex: Male
  Weight: 97.51 kg

DRUGS (3)
  1. CHANTIX [Suspect]
     Indication: SMOKING CESSATION THERAPY
     Dosage: UNK
  2. ASPIRIN [Concomitant]
     Dosage: 325 MG, UNK
  3. EFFIENT [Concomitant]
     Dosage: 10 MG, UNK

REACTIONS (3)
  - Cardiac disorder [Unknown]
  - Dyspnoea [Unknown]
  - Cough [Unknown]
